FAERS Safety Report 9523181 (Version 1)
Quarter: 2013Q1

REPORT INFORMATION
  Report Type: Spontaneous
  Country: US (occurrence: None)
  Receive Date: 20130305
  Receipt Date: 20130305
  Transmission Date: 20140127
  Serious: Yes (Other)
  Sender: FDA-Public Use
  Company Number: 163-21880-12070215

PATIENT
  Age: 70 Year
  Sex: Female
  Weight: 55.02 kg

DRUGS (4)
  1. REVLIMID [Suspect]
     Indication: PLASMA CELL MYELOMA
     Dosage: 25 MG, DAILY FOR 14 DAYS, EVERY 21 DAYS, PO
     Route: 048
     Dates: start: 20120518
  2. DEXAMETHASONE (DEXAMETHASONE) [Concomitant]
  3. ZOMETA (ZOLEDRONIC ACID) [Concomitant]
  4. MAGNESIUM OXIDE (MAGNESIUM OXIDE) [Concomitant]

REACTIONS (5)
  - Dizziness [None]
  - Hypoaesthesia [None]
  - Diarrhoea [None]
  - Chest pain [None]
  - Local swelling [None]
